FAERS Safety Report 18133634 (Version 1)
Quarter: 2020Q3

REPORT INFORMATION
  Report Type: Spontaneous
  Country: US (occurrence: US)
  Receive Date: 20200811
  Receipt Date: 20200811
  Transmission Date: 20201103
  Serious: Yes (Other)
  Sender: FDA-Public Use
  Company Number: US-GLAXOSMITHKLINE-US2020155891

PATIENT
  Age: 39 Year

DRUGS (1)
  1. RANITIDINE. [Suspect]
     Active Substance: RANITIDINE
     Dates: start: 20160615, end: 20200615

REACTIONS (2)
  - Renal cancer [Unknown]
  - Hepatic cancer [Unknown]
